FAERS Safety Report 17191826 (Version 1)
Quarter: 2019Q4

REPORT INFORMATION
  Report Type: Report from Study
  Country: DE (occurrence: DE)
  Receive Date: 20191223
  Receipt Date: 20191223
  Transmission Date: 20200122
  Serious: Yes (Congenital Anomaly)
  Sender: FDA-Public Use
  Company Number: DE-TEVA-2019-DE-1156715

PATIENT

DRUGS (3)
  1. PARACETAMOL [Suspect]
     Active Substance: ACETAMINOPHEN
     Dosage: FROM GESTATIONAL WEEKS 25-28
     Route: 064
  2. METAMIZOLE [Suspect]
     Active Substance: METAMIZOLE
     Dosage: FROM GESTATIONAL WEEKS 25-28
     Route: 064
  3. DICLOFENAC [Suspect]
     Active Substance: DICLOFENAC
     Dosage: FROM GESTATIONAL WEEKS 25-28
     Route: 064

REACTIONS (2)
  - Foetal exposure during pregnancy [Unknown]
  - Patent ductus arteriosus [Unknown]
